FAERS Safety Report 8317135-3 (Version None)
Quarter: 2012Q2

REPORT INFORMATION
  Report Type: 
  Country: None (occurrence: None)
  Receive Date: 20120425
  Receipt Date: 20120413
  Transmission Date: 20120825
  Serious: Yes (Other)
  Sender: FDA-Public Use
  Company Number: US-2012-10230

PATIENT
  Age: 73 Year
  Sex: Male

DRUGS (13)
  1. URSODIOL [Concomitant]
  2. FENOFIBRATE [Concomitant]
  3. LISINOPRIL [Concomitant]
  4. IPRATROPIUM (IPRATROPIUM BROMIDE) [Concomitant]
  5. BUSULFAN [Suspect]
     Indication: MULTIPLE MYELOMA
     Dosage: 58 MG MILLIGRAM(S), DAILY DOSE, INTRAVENOUS, 190 MG MILLIGRAM(S), DAILY DOSE, INTRAVENOUS
     Route: 042
     Dates: start: 20110421, end: 20110424
  6. BUSULFAN [Suspect]
     Indication: MULTIPLE MYELOMA
     Dosage: 58 MG MILLIGRAM(S), DAILY DOSE, INTRAVENOUS, 190 MG MILLIGRAM(S), DAILY DOSE, INTRAVENOUS
     Route: 042
     Dates: start: 20110418, end: 20110418
  7. BORTEZOMIB [Suspect]
     Indication: STEM CELL TRANSPLANT
     Dosage: 2.5 MG MILLIGRAM(S), DAILY DOSE, INTRAVENOUS
     Route: 042
     Dates: start: 20110425, end: 20110425
  8. ACYCLOVIR [Concomitant]
  9. OMEPRAZOLE [Concomitant]
  10. VITAMIN B12 [Suspect]
     Indication: ANAEMIA MACROCYTIC
     Dosage: 1000 MCG, QD, ORAL
     Route: 048
     Dates: start: 20110513
  11. SIMVASTATIN [Concomitant]
  12. DALTEPARIN SODIUM [Concomitant]
  13. ALBUTEROL SULFATE AUTOHALER [Concomitant]

REACTIONS (1)
  - DEEP VEIN THROMBOSIS [None]
